FAERS Safety Report 14781538 (Version 1)
Quarter: 2018Q2

REPORT INFORMATION
  Report Type: Spontaneous
  Country: FR (occurrence: FR)
  Receive Date: 20180420
  Receipt Date: 20180420
  Transmission Date: 20180711
  Serious: Yes (Other)
  Sender: FDA-Public Use
  Company Number: FR-MERCK KGAA-2046106

PATIENT
  Age: 63 Year
  Sex: Female
  Weight: 70 kg

DRUGS (1)
  1. NOVOTHYROX [Suspect]
     Active Substance: LEVOTHYROXINE SODIUM
     Indication: AUTOIMMUNE THYROIDITIS
     Dates: start: 201708

REACTIONS (19)
  - Blood thyroid stimulating hormone increased [None]
  - Emotional distress [Not Recovered/Not Resolved]
  - Crying [Not Recovered/Not Resolved]
  - Impaired quality of life [None]
  - Suicidal ideation [Not Recovered/Not Resolved]
  - Depression [Not Recovered/Not Resolved]
  - Aggression [None]
  - Alopecia [None]
  - Respiratory disorder [None]
  - Loss of libido [None]
  - Tremor [Not Recovered/Not Resolved]
  - Sense of oppression [None]
  - Hyperhidrosis [Not Recovered/Not Resolved]
  - Fatigue [None]
  - Irritability [None]
  - Feeling cold [Not Recovered/Not Resolved]
  - Loss of personal independence in daily activities [None]
  - Weight increased [Not Recovered/Not Resolved]
  - Fear-related avoidance of activities [None]

NARRATIVE: CASE EVENT DATE: 201709
